FAERS Safety Report 25671459 (Version 5)
Quarter: 2025Q4

REPORT INFORMATION
  Report Type: Spontaneous
  Country: CO (occurrence: CO)
  Receive Date: 20250812
  Receipt Date: 20251003
  Transmission Date: 20260117
  Serious: No
  Sender: PFIZER
  Company Number: CO-PFIZER INC-202500158570

PATIENT
  Age: 13 Year
  Sex: Male
  Weight: 40 kg

DRUGS (3)
  1. GENOTROPIN [Suspect]
     Active Substance: SOMATROPIN
     Indication: Short stature
     Dosage: 1.0 MG, DAILY
     Dates: start: 2024
  2. GENOTROPIN [Suspect]
     Active Substance: SOMATROPIN
     Dosage: 1.6 MG, DAILY
  3. BILASTINE [Concomitant]
     Active Substance: BILASTINE
     Indication: Hypersensitivity
     Dosage: 20 MG

REACTIONS (2)
  - Device leakage [Unknown]
  - Off label use [Unknown]
